FAERS Safety Report 8800059 (Version 1)
Quarter: 2012Q4

REPORT INFORMATION
  Report Type: 
  Country: US (occurrence: US)
  Receive Date: 20120921
  Receipt Date: 20120921
  Transmission Date: 20130627
  Serious: Yes (Death, Other)
  Sender: FDA-Public Use
  Company Number: PHHY2012US080261

PATIENT
  Age: 63 Year
  Sex: Male

DRUGS (9)
  1. SANDOSTATIN LAR [Suspect]
     Indication: NEUROENDOCRINE CARCINOMA METASTATIC
     Dosage: 20 mg every 3 weeks for 3 cycles
  2. SANDOSTATIN LAR [Suspect]
     Dosage: 40 mg every 3 weeks for 3 cycles
  3. ZOMETA [Suspect]
     Indication: METASTASES TO BONE
     Dosage: UNK UKN, UNK
  4. CARBOPLATIN [Concomitant]
  5. PACLITAXEL [Concomitant]
  6. PLATINUM COMPOUNDS [Concomitant]
  7. YTTRIUM (90 Y) [Concomitant]
     Dosage: UNK UKN, UNK
  8. IRINOTECAN [Concomitant]
     Dosage: UNK UKN, UNK
  9. EPIRUBICIN [Concomitant]
     Dosage: UNK UKN, UNK

REACTIONS (7)
  - Malignant neoplasm progression [Fatal]
  - Metastases to bone [Fatal]
  - Bone lesion [Fatal]
  - Bone pain [Fatal]
  - Weight gain poor [Unknown]
  - Chest pain [Unknown]
  - Arthralgia [Unknown]
